FAERS Safety Report 25288566 (Version 1)
Quarter: 2025Q2

REPORT INFORMATION
  Report Type: Spontaneous
  Country: FR (occurrence: FR)
  Receive Date: 20250509
  Receipt Date: 20250509
  Transmission Date: 20250716
  Serious: Yes (Congenital Anomaly)
  Sender: PFIZER
  Company Number: None

PATIENT
  Age: 1 Day
  Sex: Female
  Weight: 1.16 kg

DRUGS (1)
  1. SIROLIMUS [Suspect]
     Active Substance: SIROLIMUS
     Indication: Lymphangioleiomyomatosis
     Dosage: 3 MG, 1X/DAY
     Route: 064
     Dates: end: 20250402

REACTIONS (6)
  - Maternal exposure during pregnancy [Not Recovered/Not Resolved]
  - Acute kidney injury [Recovering/Resolving]
  - Thrombocytopenia neonatal [Recovering/Resolving]
  - Low birth weight baby [Not Recovered/Not Resolved]
  - Foetal growth restriction [Not Recovered/Not Resolved]
  - Premature baby [Not Recovered/Not Resolved]

NARRATIVE: CASE EVENT DATE: 20250402
